FAERS Safety Report 9398892 (Version 1)
Quarter: 2013Q3

REPORT INFORMATION
  Report Type: Spontaneous
  Country: US (occurrence: US)
  Receive Date: 20130712
  Receipt Date: 20130712
  Transmission Date: 20140515
  Serious: Yes (Other)
  Sender: FDA-Public Use
  Company Number: US-PFIZER INC-2013203756

PATIENT
  Age: 77 Year
  Sex: Female
  Weight: 132 kg

DRUGS (9)
  1. XALATAN [Suspect]
     Indication: GLAUCOMA
     Dosage: 1 GTT, 1X/DAY
  2. LATANOPROST [Suspect]
     Indication: GLAUCOMA
     Dosage: 1 GTT, 1X/DAY
     Dates: start: 201305
  3. METOPROLOL [Concomitant]
     Indication: POOR PERIPHERAL CIRCULATION
     Dosage: 50 MG, 1X/DAY
  4. ISOSORBIDE [Concomitant]
     Indication: POOR PERIPHERAL CIRCULATION
     Dosage: 100 MG, 1X/DAY
  5. REQUIP [Concomitant]
     Indication: PAIN IN EXTREMITY
     Dosage: 0.1 MG, 1X/DAY
  6. CLONIDINE [Concomitant]
     Indication: HYPERTENSION
     Dosage: 0.2 MG, 3X/DAY
  7. BUMEX [Concomitant]
     Indication: HYPERTENSION
     Dosage: 0.1 MG, AS NEEDED
  8. COZAAR [Concomitant]
     Indication: HYPERTENSION
     Dosage: 60 MG, 1X/DAY
  9. CALCITRIOL [Concomitant]
     Indication: MINERAL SUPPLEMENTATION
     Dosage: 20 MG, 1X/DAY

REACTIONS (4)
  - Cataract [Unknown]
  - Blood creatinine increased [Unknown]
  - Blood iron abnormal [Unknown]
  - Drug ineffective [Unknown]
